FAERS Safety Report 11394116 (Version 1)
Quarter: 2015Q3

REPORT INFORMATION
  Report Type: Spontaneous
  Country: US (occurrence: None)
  Receive Date: 20150817
  Receipt Date: 20150817
  Transmission Date: 20151125
  Serious: No
  Sender: FDA-Public Use
  Company Number: None

PATIENT
  Age: 44 Year
  Sex: Male

DRUGS (7)
  1. ALEVE [Concomitant]
     Active Substance: NAPROXEN SODIUM
  2. AMBIEN [Concomitant]
     Active Substance: ZOLPIDEM TARTRATE
  3. LORAZEPAM. [Concomitant]
     Active Substance: LORAZEPAM
  4. ATENOLOL. [Concomitant]
     Active Substance: ATENOLOL
  5. VOTRIENT [Suspect]
     Active Substance: PAZOPANIB HYDROCHLORIDE
     Indication: RENAL DISORDER
     Route: 048
     Dates: start: 20140903
  6. VOTRIENT [Suspect]
     Active Substance: PAZOPANIB HYDROCHLORIDE
     Indication: URETERAL DISORDER
     Route: 048
     Dates: start: 20140903
  7. MS. CONTIN [Concomitant]

REACTIONS (1)
  - Fatigue [None]

NARRATIVE: CASE EVENT DATE: 201507
